FAERS Safety Report 6326162-7 (Version None)
Quarter: 2009Q3

REPORT INFORMATION
  Report Type: 
  Country: None (occurrence: None)
  Receive Date: 20090824
  Receipt Date: 20090812
  Transmission Date: 20100115
  Serious: Yes (Other)
  Sender: FDA-Public Use
  Company Number: AU-PFIZER INC-2009254039

PATIENT

DRUGS (1)
  1. CHAMPIX [Suspect]

REACTIONS (5)
  - ANAPHYLACTIC REACTION [None]
  - DIARRHOEA [None]
  - DIZZINESS [None]
  - DYSPNOEA [None]
  - NAUSEA [None]
